FAERS Safety Report 16395092 (Version 2)
Quarter: 2019Q2

REPORT INFORMATION
  Report Type: Spontaneous
  Country: NL (occurrence: NL)
  Receive Date: 20190605
  Receipt Date: 20190618
  Transmission Date: 20190711
  Serious: Yes (Life-Threatening, Hospitalization)
  Sender: FDA-Public Use
  Company Number: NL-MYLANLABS-2019M1053487

PATIENT
  Age: 76 Year
  Sex: Male

DRUGS (12)
  1. FORMOTEROL [Concomitant]
     Active Substance: FORMOTEROL
     Dosage: 1DD
     Route: 055
  2. SEREVENT DISKUS [Concomitant]
     Active Substance: SALMETEROL XINAFOATE
     Dosage: 2DD2
     Route: 055
  3. ACLIDINIUM [Concomitant]
     Active Substance: ACLIDINIUM BROMIDE
     Dosage: 1DD
  4. CHOLECALCIFEROL [Concomitant]
     Active Substance: CHOLECALCIFEROL
     Dosage: 1DD
  5. FERROFUMARAAT [Concomitant]
     Dosage: 1DD
  6. FUROSEMIDE. [Concomitant]
     Active Substance: FUROSEMIDE
     Dosage: 2DD
  7. LOSARTAN. [Suspect]
     Active Substance: LOSARTAN
     Indication: MYOCARDIAL INFARCTION
     Dosage: 1X PER DAG 1 STUK
     Route: 048
     Dates: start: 20181117, end: 20181126
  8. METOPROLOL. [Concomitant]
     Active Substance: METOPROLOL
     Dosage: 1DD
  9. ATORVASTATINE                      /01326101/ [Concomitant]
     Active Substance: ATORVASTATIN
     Dosage: 1DD
  10. SPIRONOLACTON [Concomitant]
     Active Substance: SPIRONOLACTONE
     Dosage: 1DD2
  11. OMEPRAZOL                          /00661201/ [Concomitant]
     Active Substance: OMEPRAZOLE
     Dosage: 2DD
  12. FENPROCOUMON [Concomitant]
     Active Substance: PHENPROCOUMON
     Dosage: VOLGENS AFSPRAAK

REACTIONS (2)
  - Therapeutic response unexpected [Recovering/Resolving]
  - Angioedema [Recovering/Resolving]

NARRATIVE: CASE EVENT DATE: 20181125
